FAERS Safety Report 24088041 (Version 1)
Quarter: 2024Q3

REPORT INFORMATION
  Report Type: Spontaneous
  Country: CN (occurrence: CN)
  Receive Date: 20240715
  Receipt Date: 20240715
  Transmission Date: 20241017
  Serious: Yes (Hospitalization)
  Sender: BEIGENE
  Company Number: CN-BEIGENE-BGN-2024-010489

PATIENT

DRUGS (3)
  1. TISLELIZUMAB [Suspect]
     Active Substance: TISLELIZUMAB
     Indication: Colon cancer
     Dosage: 20 MILLILITER, Q3WK
     Route: 041
     Dates: start: 20240628
  2. PEMETREXED DISODIUM [Suspect]
     Active Substance: PEMETREXED DISODIUM
     Indication: Colon cancer
     Dosage: 0.7 GRAM, Q3WK
     Route: 041
     Dates: start: 20240629
  3. BEVACIZUMAB [Suspect]
     Active Substance: BEVACIZUMAB
     Indication: Colon cancer
     Dosage: 400 MILLIGRAM, Q3WK
     Route: 041
     Dates: start: 20240628

REACTIONS (1)
  - Eosinophil count decreased [Unknown]

NARRATIVE: CASE EVENT DATE: 20240701
